FAERS Safety Report 17757858 (Version 1)
Quarter: 2020Q2

REPORT INFORMATION
  Report Type: Report from Study
  Country: None (occurrence: US)
  Receive Date: 20200507
  Receipt Date: 20200507
  Transmission Date: 20200714
  Serious: Yes (Hospitalization)
  Sender: FDA-Public Use
  Company Number: US-ABBVIE-20K-163-3390969-00

PATIENT
  Age: 78 Year
  Sex: Male

DRUGS (2)
  1. IMBRUVICA [Suspect]
     Active Substance: IBRUTINIB
     Indication: DISEASE PROGRESSION
     Route: 048
     Dates: start: 20160620
  2. IMBRUVICA [Suspect]
     Active Substance: IBRUTINIB
     Indication: DISEASE PROGRESSION
     Route: 048

REACTIONS (4)
  - Atrial fibrillation [Unknown]
  - Splenomegaly [Not Recovered/Not Resolved]
  - Diarrhoea [Unknown]
  - Hospitalisation [Unknown]

NARRATIVE: CASE EVENT DATE: 20160713
